FAERS Safety Report 9829337 (Version 3)
Quarter: 2014Q2

REPORT INFORMATION
  Report Type: Spontaneous
  Country: IT (occurrence: IT)
  Receive Date: 20140120
  Receipt Date: 20140416
  Transmission Date: 20141212
  Serious: Yes (Hospitalization)
  Sender: FDA-Public Use
  Company Number: IT-ROCHE-1334682

PATIENT
  Age: 51 Year
  Sex: Male
  Weight: 66 kg

DRUGS (5)
  1. MABTHERA [Suspect]
     Indication: FOLLICLE CENTRE LYMPHOMA, FOLLICULAR GRADE I, II, III STAGE III
     Route: 042
     Dates: start: 20130918, end: 20131211
  2. ENDOXAN BAXTER [Concomitant]
     Indication: FOLLICLE CENTRE LYMPHOMA, FOLLICULAR GRADE I, II, III STAGE III
     Route: 042
     Dates: start: 20130919, end: 20131212
  3. EPIRUBICIN HCL [Concomitant]
     Indication: FOLLICLE CENTRE LYMPHOMA, FOLLICULAR GRADE I, II, III STAGE III
     Route: 042
     Dates: start: 20130919, end: 20131212
  4. VINCRISTINE [Concomitant]
     Route: 042
     Dates: start: 20130919, end: 20131212
  5. DELTACORTENE [Concomitant]
     Route: 048
     Dates: start: 20130919, end: 20131216

REACTIONS (1)
  - Respiratory failure [Recovering/Resolving]
